FAERS Safety Report 25204127 (Version 4)
Quarter: 2025Q3

REPORT INFORMATION
  Report Type: Report from Study
  Country: CN (occurrence: CN)
  Receive Date: 20250416
  Receipt Date: 20250710
  Transmission Date: 20251021
  Serious: Yes (Death, Other)
  Sender: GILEAD
  Company Number: CN-GILEAD-2025-0710623

PATIENT
  Age: 32 Year
  Sex: Female

DRUGS (4)
  1. SACITUZUMAB GOVITECAN-HZIY [Suspect]
     Active Substance: SACITUZUMAB GOVITECAN-HZIY
     Indication: Breast cancer
     Route: 041
     Dates: start: 20230710
  2. SACITUZUMAB GOVITECAN-HZIY [Suspect]
     Active Substance: SACITUZUMAB GOVITECAN-HZIY
     Route: 065
     Dates: start: 20230717
  3. SACITUZUMAB GOVITECAN-HZIY [Suspect]
     Active Substance: SACITUZUMAB GOVITECAN-HZIY
     Route: 065
     Dates: start: 202308
  4. SACITUZUMAB GOVITECAN-HZIY [Suspect]
     Active Substance: SACITUZUMAB GOVITECAN-HZIY
     Route: 065
     Dates: start: 202309

REACTIONS (13)
  - Acute respiratory distress syndrome [Fatal]
  - Septic shock [Fatal]
  - Hyperkalaemia [Fatal]
  - Metastases to breast [Fatal]
  - Electrolyte imbalance [Fatal]
  - Metabolic acidosis [Fatal]
  - Myocardial injury [Fatal]
  - Cardiac failure [Fatal]
  - Pericardial effusion [Fatal]
  - Sepsis [Fatal]
  - Pneumonia [Fatal]
  - Disease progression [Fatal]
  - Infection [Fatal]
